FAERS Safety Report 21435865 (Version 6)
Quarter: 2024Q2

REPORT INFORMATION
  Report Type: Report from Study
  Country: BE (occurrence: BE)
  Receive Date: 20221010
  Receipt Date: 20240524
  Transmission Date: 20240715
  Serious: Yes (Life-Threatening, Hospitalization, Other)
  Sender: FDA-Public Use
  Company Number: BE-ABBVIE-4146155

PATIENT
  Age: 62 Year
  Sex: Male
  Weight: 104 kg

DRUGS (20)
  1. UPADACITINIB [Suspect]
     Active Substance: UPADACITINIB
     Indication: Rheumatoid arthritis
     Route: 048
     Dates: start: 20211021, end: 20221007
  2. UPADACITINIB [Suspect]
     Active Substance: UPADACITINIB
     Indication: Rheumatoid arthritis
     Route: 048
     Dates: start: 20221010
  3. FLECAINIDE [Concomitant]
     Active Substance: FLECAINIDE
     Indication: Atrial fibrillation
     Route: 048
     Dates: start: 20220310, end: 20220325
  4. YELLOW FEVER VACCINE NOS [Concomitant]
     Active Substance: YELLOW FEVER VIRUS STRAIN 17D-204 LIVE ANTIGEN
     Indication: Prophylaxis
     Dates: start: 2004, end: 2004
  5. CHOLECALCIFEROL [Concomitant]
     Active Substance: CHOLECALCIFEROL
     Indication: Prophylaxis
     Route: 048
     Dates: start: 20210226
  6. BISOPROLOL [Concomitant]
     Active Substance: BISOPROLOL\BISOPROLOL FUMARATE
     Indication: Atrial fibrillation
     Route: 048
     Dates: start: 20220310, end: 20220325
  7. NADROPARIN CALCIUM [Concomitant]
     Active Substance: NADROPARIN CALCIUM
     Indication: Cardiac arrest
     Route: 058
     Dates: start: 20221010
  8. NADROPARIN CALCIUM [Concomitant]
     Active Substance: NADROPARIN CALCIUM
     Indication: Cardiac arrest
     Route: 058
     Dates: start: 20221008, end: 20221009
  9. SARS-Cov-2 vaccine [Concomitant]
     Indication: COVID-19 immunisation
     Dates: start: 20210616, end: 20210616
  10. SARS-Cov-2 vaccine [Concomitant]
     Indication: COVID-19 immunisation
     Dates: start: 20210512, end: 20210512
  11. SARS-Cov-2 vaccine [Concomitant]
     Indication: COVID-19 immunisation
     Dates: start: 20210925, end: 20210925
  12. SARS-Cov-2 vaccine [Concomitant]
     Indication: COVID-19 immunisation
     Dates: start: 20220316, end: 20220316
  13. SARS-Cov-2 vaccine [Concomitant]
     Indication: COVID-19 immunisation
     Dates: start: 20211021, end: 20211021
  14. EDOXABAN TOSYLATE [Concomitant]
     Active Substance: EDOXABAN TOSYLATE
     Indication: Atrial fibrillation
     Route: 048
     Dates: start: 20220126, end: 20220309
  15. ACETYLCYSTEINE [Concomitant]
     Active Substance: ACETYLCYSTEINE
     Indication: Cardiac arrest
     Route: 048
     Dates: start: 20221008
  16. DI TE PER ANATOXAL [Concomitant]
     Active Substance: DIPHTHERIA AND TETANUS TOXOIDS AND PERTUSSIS VACCINE ADSORBED
     Indication: Prophylaxis
     Dates: start: 20161010, end: 20161010
  17. ROCURONIUM BRAUN [Concomitant]
     Indication: Cardiac arrest
     Route: 042
     Dates: start: 20221006, end: 20221006
  18. SOLU-CORTEF [Concomitant]
     Active Substance: HYDROCORTISONE SODIUM SUCCINATE
     Indication: Cardiac arrest
     Route: 042
     Dates: start: 20221008
  19. DIPRIVAN [Concomitant]
     Active Substance: ISOPROPYL ALCOHOL\PROPOFOL
     Indication: Cardiac arrest
     Route: 042
     Dates: start: 20221006, end: 20221006
  20. DAFALGAN [Concomitant]
     Active Substance: ACETAMINOPHEN
     Indication: Cardiac arrest
     Route: 048
     Dates: start: 20221008

REACTIONS (2)
  - Cardiac arrest [Recovered/Resolved]
  - Implantable defibrillator insertion [Recovered/Resolved]

NARRATIVE: CASE EVENT DATE: 20221006
